FAERS Safety Report 10200429 (Version 2)
Quarter: 2014Q3

REPORT INFORMATION
  Report Type: Spontaneous
  Country: CA (occurrence: CA)
  Receive Date: 20140528
  Receipt Date: 20140904
  Transmission Date: 20150326
  Serious: Yes (Other)
  Sender: FDA-Public Use
  Company Number: ALCN2014CA003022

PATIENT
  Age: 12 Year
  Sex: Male

DRUGS (1)
  1. TRIESENCE [Suspect]
     Active Substance: TRIAMCINOLONE ACETONIDE
     Dosage: UNK
     Route: 065
     Dates: start: 201108, end: 201110

REACTIONS (3)
  - Off label use [Recovered/Resolved]
  - Device material opacification [Recovered/Resolved]
  - Visual acuity reduced [Recovered/Resolved]

NARRATIVE: CASE EVENT DATE: 201108
